FAERS Safety Report 9798172 (Version 3)
Quarter: 2014Q1

REPORT INFORMATION
  Report Type: Report from Study
  Country: FR (occurrence: FR)
  Receive Date: 20140106
  Receipt Date: 20140110
  Transmission Date: 20141002
  Serious: Yes (Death, Hospitalization)
  Sender: FDA-Public Use
  Company Number: FR-009507513-1305FRA014135

PATIENT
  Age: 64 Year
  Sex: Male
  Weight: 67 kg

DRUGS (8)
  1. BOCEPREVIR [Suspect]
     Indication: HEPATITIS C
     Dosage: 2400 MG, QD
     Route: 048
     Dates: start: 20130430, end: 20130620
  2. VIRAFERONPEG [Suspect]
     Indication: HEPATITIS C
     Dosage: 100 MICROGRAM, QW
     Dates: start: 20130329, end: 20130620
  3. REBETOL [Suspect]
     Indication: HEPATITIS C
     Dosage: 1000 MG, QD
     Route: 048
     Dates: start: 20130329, end: 20130620
  4. DEROXAT [Concomitant]
     Indication: DEPRESSION
     Dosage: 20 MG, QD
     Dates: start: 20130522
  5. ALDACTONE TABLETS [Concomitant]
     Indication: ASCITES
     Dosage: 50 MG, QD
     Dates: start: 20130516
  6. ACUPAN [Concomitant]
     Indication: PAIN
     Dosage: UNK
     Dates: start: 20131010
  7. PERFALGAN [Concomitant]
     Indication: PAIN
     Dosage: UNK
     Dates: start: 20131025
  8. MORPHINE [Concomitant]
     Indication: PAIN
     Dosage: UNK
     Dates: start: 20131022

REACTIONS (3)
  - Therapeutic embolisation [Recovered/Resolved]
  - Metastases to lymph nodes [Fatal]
  - Peritonitis [Fatal]
